FAERS Safety Report 14955748 (Version 1)
Quarter: 2018Q2

REPORT INFORMATION
  Report Type: Spontaneous
  Country: DE (occurrence: DE)
  Receive Date: 20180531
  Receipt Date: 20180531
  Transmission Date: 20180711
  Serious: Yes (Other)
  Sender: FDA-Public Use
  Company Number: DE-AUROBINDO-AUR-APL-2018-017007

PATIENT
  Sex: Male

DRUGS (2)
  1. LAMOTRIGINE. [Concomitant]
     Active Substance: LAMOTRIGINE
     Indication: SEIZURE
     Dosage: 50 MG/D
     Route: 065
     Dates: start: 201612, end: 201703
  2. LEVETIRACETAM. [Suspect]
     Active Substance: LEVETIRACETAM
     Indication: SEIZURE
     Dosage: 1000 MILLIGRAM, 3 TIMES A DAY
     Route: 065
     Dates: start: 201409, end: 201612

REACTIONS (4)
  - Off label use [Unknown]
  - Aggression [Unknown]
  - Seizure [Unknown]
  - Restlessness [Unknown]

NARRATIVE: CASE EVENT DATE: 201409
